FAERS Safety Report 24910624 (Version 1)
Quarter: 2025Q1

REPORT INFORMATION
  Report Type: Spontaneous
  Country: CA (occurrence: CA)
  Receive Date: 20250131
  Receipt Date: 20250131
  Transmission Date: 20250408
  Serious: Yes (Other)
  Sender: SANDOZ
  Company Number: CA-002147023-NVSC2025CA012618

PATIENT
  Age: 62 Year
  Sex: Female

DRUGS (13)
  1. CIPROFLOXACIN [Suspect]
     Active Substance: CIPROFLOXACIN
     Indication: Product used for unknown indication
     Route: 065
  2. ENTYVIO [Suspect]
     Active Substance: VEDOLIZUMAB
     Route: 040
  3. ENTYVIO [Suspect]
     Active Substance: VEDOLIZUMAB
     Indication: Colitis ulcerative
     Route: 040
  4. ENTYVIO [Suspect]
     Active Substance: VEDOLIZUMAB
     Route: 040
  5. ENTYVIO [Suspect]
     Active Substance: VEDOLIZUMAB
     Route: 040
  6. ENTYVIO [Suspect]
     Active Substance: VEDOLIZUMAB
     Route: 040
  7. ENTYVIO [Suspect]
     Active Substance: VEDOLIZUMAB
     Route: 040
  8. ENTYVIO [Suspect]
     Active Substance: VEDOLIZUMAB
     Route: 040
  9. ENTYVIO [Suspect]
     Active Substance: VEDOLIZUMAB
     Route: 040
  10. ENTYVIO [Suspect]
     Active Substance: VEDOLIZUMAB
     Route: 040
  11. ENTYVIO [Suspect]
     Active Substance: VEDOLIZUMAB
     Route: 040
  12. ENTYVIO [Suspect]
     Active Substance: VEDOLIZUMAB
     Route: 040
  13. PREDNISONE [Concomitant]
     Active Substance: PREDNISONE
     Indication: Product used for unknown indication
     Route: 048

REACTIONS (7)
  - Brain fog [Not Recovered/Not Resolved]
  - Pouchitis [Not Recovered/Not Resolved]
  - Colitis ulcerative [Not Recovered/Not Resolved]
  - Clostridium difficile infection [Not Recovered/Not Resolved]
  - Drug hypersensitivity [Not Recovered/Not Resolved]
  - Therapeutic reaction time decreased [Not Recovered/Not Resolved]
  - Off label use [Not Recovered/Not Resolved]
